FAERS Safety Report 15423551 (Version 2)
Quarter: 2018Q4

REPORT INFORMATION
  Report Type: Spontaneous
  Country: US (occurrence: US)
  Receive Date: 20180925
  Receipt Date: 20181001
  Transmission Date: 20190204
  Serious: No
  Sender: FDA-Public Use
  Company Number: US-PFIZER INC-2018380324

PATIENT
  Age: 42 Year
  Sex: Female

DRUGS (1)
  1. CYTOTEC [Suspect]
     Active Substance: MISOPROSTOL
     Dosage: UNK (1 TIME DOSE)
     Route: 067
     Dates: start: 201802

REACTIONS (4)
  - Skin disorder [Recovering/Resolving]
  - Skin discolouration [Recovering/Resolving]
  - Incorrect route of product administration [Unknown]
  - Pruritus [Unknown]

NARRATIVE: CASE EVENT DATE: 201802
